FAERS Safety Report 9867619 (Version 2)
Quarter: 2015Q1

REPORT INFORMATION
  Report Type: Spontaneous
  Country: US (occurrence: US)
  Receive Date: 20140204
  Receipt Date: 20150205
  Transmission Date: 20150721
  Serious: No
  Sender: FDA-Public Use
  Company Number: US-GALDERMA-US13003394

PATIENT
  Sex: Male

DRUGS (4)
  1. EPIDUO [Suspect]
     Active Substance: ADAPALENE\BENZOYL PEROXIDE
     Indication: ROSACEA
     Route: 061
     Dates: start: 2012, end: 2012
  2. CETAPHIL [Concomitant]
     Active Substance: AVOBENZONE\OCTOCRYLENE\TRICLOSAN
     Indication: THERAPEUTIC SKIN CARE TOPICAL
     Route: 061
  3. NEUTROGENA ULTRA GENTLE CLEANSER [Concomitant]
     Indication: THERAPEUTIC SKIN CARE TOPICAL
     Route: 061
  4. SKINMEDICA ULTRA SHEER MOISTURIZER [Concomitant]
     Indication: DRY SKIN PROPHYLAXIS
     Route: 061

REACTIONS (6)
  - Dry skin [Recovered/Resolved]
  - Product use issue [Recovered/Resolved]
  - Blister [Recovered/Resolved]
  - Swelling face [Recovered/Resolved]
  - Condition aggravated [Recovered/Resolved]
  - Skin irritation [Recovered/Resolved]

NARRATIVE: CASE EVENT DATE: 2012
